FAERS Safety Report 10997385 (Version 1)
Quarter: 2015Q2

REPORT INFORMATION
  Report Type: Spontaneous
  Country: US (occurrence: None)
  Receive Date: 20150407
  Receipt Date: 20150407
  Transmission Date: 20150821
  Serious: Yes (Disabling)
  Sender: FDA-Public Use
  Company Number: None

PATIENT
  Age: 57 Year
  Sex: Female
  Weight: 178 kg

DRUGS (9)
  1. ZOCOR [Suspect]
     Active Substance: SIMVASTATIN
  2. UREA. [Concomitant]
     Active Substance: UREA
  3. LIPITOR [Suspect]
     Active Substance: ATORVASTATIN CALCIUM
     Indication: BLOOD CHOLESTEROL INCREASED
     Route: 048
     Dates: start: 1995
  4. LIPITOR [Suspect]
     Active Substance: ATORVASTATIN CALCIUM
     Indication: BLOOD TRIGLYCERIDES INCREASED
     Route: 048
     Dates: start: 1995
  5. RESTASIS [Suspect]
     Active Substance: CYCLOSPORINE
  6. LIVALO [Suspect]
     Active Substance: PITAVASTATIN CALCIUM
  7. CRESTOR [Suspect]
     Active Substance: ROSUVASTATIN CALCIUM
  8. HALOG OINTMENT [Concomitant]
     Active Substance: HALCINONIDE
  9. SALICYEIS ACID [Concomitant]

REACTIONS (11)
  - Pain [None]
  - Neuropathy peripheral [None]
  - Plantar erythema [None]
  - Plantar fasciitis [None]
  - Skin exfoliation [None]
  - Nail disorder [None]
  - Pain in extremity [None]
  - Muscular weakness [None]
  - Onychomadesis [None]
  - Myalgia [None]
  - Hyperkeratosis [None]
